FAERS Safety Report 17350420 (Version 1)
Quarter: 2020Q1

REPORT INFORMATION
  Report Type: Spontaneous
  Country: US (occurrence: US)
  Receive Date: 20200130
  Receipt Date: 20200130
  Transmission Date: 20200409
  Serious: Yes (Other)
  Sender: FDA-Public Use
  Company Number: US-MALLINCKRODT-T201907152

PATIENT
  Sex: Female

DRUGS (1)
  1. H.P. ACTHAR [Suspect]
     Active Substance: CORTICOTROPIN
     Indication: PSORIATIC ARTHROPATHY
     Dosage: 80 UNITS/ 1ML, EVERY 72 HOURS
     Route: 030
     Dates: start: 201907

REACTIONS (3)
  - Impaired healing [Unknown]
  - Psoriatic arthropathy [Unknown]
  - Infection [Unknown]
